FAERS Safety Report 10396308 (Version 1)
Quarter: 2014Q1

REPORT INFORMATION
  Report Type: Spontaneous
  Country: US (occurrence: None)
  Receive Date: 20130815
  Receipt Date: 20130815
  Transmission Date: 20141002
  Serious: Yes (Other)
  Sender: FDA-Public Use
  Company Number: ADR-2013-00234

PATIENT
  Age: 61 Year
  Sex: Female

DRUGS (1)
  1. LIORESAL INTRATHECAL (BACLOFEN INJECTION) 2000 MCG/ML [Suspect]
     Indication: MUSCLE SPASTICITY

REACTIONS (6)
  - Beta haemolytic streptococcal infection [None]
  - Purulent discharge [None]
  - Implant site erythema [None]
  - Abdominal wound dehiscence [None]
  - Streptococcus test positive [None]
  - Implant site infection [None]
